FAERS Safety Report 5196695-8 (Version None)
Quarter: 2006Q4

REPORT INFORMATION
  Report Type: 
  Country: None (occurrence: None)
  Receive Date: 20061228
  Receipt Date: 20061228
  Transmission Date: 20070319
  Serious: Yes (Hospitalization)
  Sender: FDA-Public Use
  Company Number: None

PATIENT
  Age: 59 Year
  Sex: Male
  Weight: 77.4 kg

DRUGS (2)
  1. OXALIPLATIN [Suspect]
     Indication: LUNG NEOPLASM MALIGNANT
     Dosage: 85MG/M2 DAYS 1 + 15 /Q28 IV
     Route: 042
     Dates: start: 20060713
  2. DOCETAXEL DAYS 1 + 8 Q28 DAYS [Suspect]
     Indication: LUNG NEOPLASM MALIGNANT
     Dosage: 30 MG/M2 DAYS 1 + 8 /Q28 IV
     Route: 042
     Dates: start: 20060713

REACTIONS (3)
  - BACILLUS INFECTION [None]
  - BLOOD CULTURE POSITIVE [None]
  - STAPHYLOCOCCAL INFECTION [None]
